FAERS Safety Report 4853777-5 (Version None)
Quarter: 2005Q4

REPORT INFORMATION
  Report Type: 
  Country: None (occurrence: None)
  Receive Date: 20051212
  Receipt Date: 20051128
  Transmission Date: 20060501
  Serious: Yes (Other)
  Sender: FDA-Public Use
  Company Number: 2005130246

PATIENT
  Age: 38 Year
  Sex: Female

DRUGS (5)
  1. GEODON [Suspect]
     Indication: HALLUCINATION, AUDITORY
     Dosage: 160 MG (80 MG, 2 IN 1 D)
     Dates: start: 20030418
  2. GEODON [Suspect]
     Indication: MOOD SWINGS
     Dosage: 160 MG (80 MG, 2 IN 1 D)
     Dates: start: 20030418
  3. ZOLOFT [Suspect]
     Indication: ANXIETY
     Dosage: ORAL
     Route: 048
     Dates: start: 20030815
  4. ZOLOFT [Suspect]
     Indication: DEPRESSION
     Dosage: ORAL
     Route: 048
     Dates: start: 20030815
  5. CLONAZEPAM [Concomitant]

REACTIONS (7)
  - ALANINE AMINOTRANSFERASE INCREASED [None]
  - ANXIETY [None]
  - ASPARTATE AMINOTRANSFERASE INCREASED [None]
  - BLOOD SODIUM DECREASED [None]
  - DEPRESSION [None]
  - DIABETES MELLITUS [None]
  - LABORATORY TEST ABNORMAL [None]
